FAERS Safety Report 8554077-2 (Version None)
Quarter: 2012Q3

REPORT INFORMATION
  Report Type: 
  Country: None (occurrence: None)
  Receive Date: 20120731
  Receipt Date: 20120723
  Transmission Date: 20120928
  Serious: Yes (Other)
  Sender: FDA-Public Use
  Company Number: JP-VERTEX PHARMACEUTICALS INC.-AE-2012-010866

PATIENT
  Age: 32 Year
  Sex: Male

DRUGS (5)
  1. RIBAVIRIN [Concomitant]
     Route: 048
     Dates: start: 20120227
  2. PEG-INTRON [Concomitant]
     Indication: HEPATITIS C
     Route: 058
     Dates: start: 20120117
  3. PEG-INTRON [Concomitant]
     Route: 058
     Dates: start: 20120604
  4. TELAVIC (TELAPREVIR) [Suspect]
     Indication: HEPATITIS C
     Route: 048
     Dates: start: 20120117
  5. RIBAVIRIN [Concomitant]
     Indication: HEPATITIS C
     Route: 048
     Dates: start: 20120117, end: 20120226

REACTIONS (1)
  - WHITE BLOOD CELL COUNT DECREASED [None]
